FAERS Safety Report 7129603-0 (Version None)
Quarter: 2010Q4

REPORT INFORMATION
  Report Type: 
  Country: None (occurrence: None)
  Receive Date: 20101130
  Receipt Date: 20101122
  Transmission Date: 20110411
  Serious: Yes (Hospitalization)
  Sender: FDA-Public Use
  Company Number: PHHO2010US17745

PATIENT
  Sex: Female
  Weight: 62 kg

DRUGS (5)
  1. EXELON [Suspect]
     Indication: DEMENTIA ALZHEIMER'S TYPE
     Dosage: CODE NOT BROKEN
     Route: 062
     Dates: start: 20100826, end: 20101120
  2. BLINDED NO TREATMENT RECEIVED NOMED [Suspect]
     Indication: DEMENTIA ALZHEIMER'S TYPE
     Dosage: CODE NOT BROKEN
     Route: 062
     Dates: start: 20100826, end: 20101120
  3. EXELON [Suspect]
     Indication: DEMENTIA ALZHEIMER'S TYPE
     Dosage: CODE NOT BROKEN
     Route: 062
     Dates: start: 20100826, end: 20101120
  4. NAMENDA [Concomitant]
  5. ZOLOFT [Concomitant]

REACTIONS (3)
  - ABDOMINAL PAIN [None]
  - DECREASED APPETITE [None]
  - VOMITING [None]
